FAERS Safety Report 21217279 (Version 1)
Quarter: 2022Q3

REPORT INFORMATION
  Report Type: Spontaneous
  Country: US (occurrence: None)
  Receive Date: 20220816
  Receipt Date: 20220816
  Transmission Date: 20221027
  Serious: Yes (Other)
  Sender: FDA-Public Use
  Company Number: None

PATIENT
  Age: 65 Year
  Sex: Male

DRUGS (1)
  1. BEBTELOVIMAB [Suspect]
     Active Substance: BEBTELOVIMAB
     Indication: COVID-19
     Dosage: OTHER FREQUENCY : ONCE;?
     Route: 042
     Dates: start: 20220815, end: 20220815

REACTIONS (8)
  - Dyspnoea [None]
  - Dizziness [None]
  - Loss of consciousness [None]
  - Heart rate decreased [None]
  - Urinary incontinence [None]
  - Syncope [None]
  - Paraesthesia [None]
  - Unresponsive to stimuli [None]

NARRATIVE: CASE EVENT DATE: 20220815
